FAERS Safety Report 11416968 (Version 2)
Quarter: 2015Q4

REPORT INFORMATION
  Report Type: Spontaneous
  Country: US (occurrence: US)
  Receive Date: 20150825
  Receipt Date: 20151013
  Transmission Date: 20160304
  Serious: Yes (Other)
  Sender: FDA-Public Use
  Company Number: US-BAYER-2015-406094

PATIENT
  Age: 35 Year
  Sex: Female
  Weight: 55.33 kg

DRUGS (2)
  1. MIRENA [Suspect]
     Active Substance: LEVONORGESTREL
     Indication: CONTRACEPTION
     Dosage: 20 MCG/24HR, CONT
     Route: 015
     Dates: start: 20140130, end: 20140318
  2. IBUPROFEN. [Concomitant]
     Active Substance: IBUPROFEN

REACTIONS (8)
  - Menstruation irregular [None]
  - Nausea [None]
  - Menorrhagia [None]
  - Genital haemorrhage [None]
  - Mood altered [None]
  - Cystitis [None]
  - Premenstrual syndrome [None]
  - Diarrhoea [None]

NARRATIVE: CASE EVENT DATE: 2014
